FAERS Safety Report 25503757 (Version 1)
Quarter: 2025Q3

REPORT INFORMATION
  Report Type: Spontaneous
  Country: US (occurrence: None)
  Receive Date: 20250701
  Receipt Date: 20250701
  Transmission Date: 20251021
  Serious: Yes (Hospitalization)
  Sender: FDA-CTU
  Company Number: None

PATIENT
  Age: 38 Year
  Sex: Female

DRUGS (1)
  1. COSENTYX [Suspect]
     Active Substance: SECUKINUMAB
     Indication: Dermatitis psoriasiform
     Dosage: FREQUENCY : MONTHLY;?
     Route: 058
     Dates: start: 20250430, end: 20250520

REACTIONS (4)
  - Pharyngitis [None]
  - Fungal infection [None]
  - Bacteraemia [None]
  - Vomiting [None]

NARRATIVE: CASE EVENT DATE: 20250501
